FAERS Safety Report 7578768-5 (Version None)
Quarter: 2011Q2

REPORT INFORMATION
  Report Type: 
  Country: None (occurrence: None)
  Receive Date: 20110628
  Receipt Date: 20100802
  Transmission Date: 20111010
  Serious: No
  Sender: FDA-Public Use
  Company Number: US-PFIZER INC-2010091716

PATIENT
  Sex: Female

DRUGS (5)
  1. AMLODIPINE BESYLATE [Concomitant]
     Dosage: UNK
  2. RANITIDINE [Concomitant]
     Dosage: UNK
  3. LISINOPRIL [Concomitant]
     Dosage: UNK
  4. DETROL LA [Suspect]
     Indication: HYPERTONIC BLADDER
     Dosage: UNK
     Route: 048
     Dates: start: 20091201, end: 20100201
  5. ACTOS [Concomitant]
     Dosage: UNK

REACTIONS (1)
  - ENURESIS [None]
